FAERS Safety Report 23108652 (Version 1)
Quarter: 2023Q4

REPORT INFORMATION
  Report Type: Report from Study
  Country: DE (occurrence: DE)
  Receive Date: 20231026
  Receipt Date: 20231026
  Transmission Date: 20240110
  Serious: Yes (Other)
  Sender: FDA-Public Use
  Company Number: DE-002147023-NVSC2023DE226285

PATIENT
  Age: 56 Year
  Sex: Female

DRUGS (2)
  1. MEKINIST [Suspect]
     Active Substance: TRAMETINIB DIMETHYL SULFOXIDE
     Indication: Malignant melanoma
     Dosage: UNK
     Route: 065
     Dates: start: 202003, end: 202103
  2. TAFINLAR [Suspect]
     Active Substance: DABRAFENIB MESYLATE
     Indication: Malignant melanoma
     Dosage: UNK
     Route: 065
     Dates: start: 202003, end: 202103

REACTIONS (16)
  - Inflammatory bowel disease [Unknown]
  - Fear of death [Unknown]
  - Feeling of despair [Unknown]
  - Hormone level abnormal [Unknown]
  - Nervousness [Unknown]
  - Scar [Unknown]
  - Lymphoedema [Unknown]
  - Illness [Unknown]
  - Sense of oppression [Unknown]
  - Pain [Unknown]
  - Depressed mood [Unknown]
  - Feeling guilty [Unknown]
  - Fatigue [Unknown]
  - Arthralgia [Unknown]
  - Diarrhoea [Unknown]
  - Anxiety [Unknown]
